FAERS Safety Report 6438752-1 (Version None)
Quarter: 2009Q4

REPORT INFORMATION
  Report Type: 
  Country: None (occurrence: None)
  Receive Date: 20091113
  Receipt Date: 20091102
  Transmission Date: 20100525
  Serious: Yes (Other)
  Sender: FDA-Public Use
  Company Number: SE-JNJFOC-20091100780

PATIENT
  Age: 64 Year
  Sex: Male

DRUGS (2)
  1. REMICADE [Suspect]
     Indication: RHEUMATOID ARTHRITIS
     Route: 042
     Dates: start: 20050420, end: 20090427
  2. METHOTREXATE [Suspect]
     Indication: RHEUMATOID ARTHRITIS
     Dates: start: 20041220, end: 20090629

REACTIONS (4)
  - ACTINIC KERATOSIS [None]
  - BASAL CELL CARCINOMA [None]
  - MALIGNANT MELANOMA [None]
  - SKIN PAPILLOMA [None]
